FAERS Safety Report 11990404 (Version 5)
Quarter: 2016Q1

REPORT INFORMATION
  Report Type: Spontaneous
  Country: US (occurrence: US)
  Receive Date: 20160202
  Receipt Date: 20160318
  Transmission Date: 20160526
  Serious: Yes (Hospitalization, Other)
  Sender: FDA-Public Use
  Company Number: US-MEDTRONIC-1047217

PATIENT
  Age: 11 Year
  Sex: Male
  Weight: 32 kg

DRUGS (19)
  1. LIORESAL [Suspect]
     Active Substance: BACLOFEN
     Indication: MUSCLE SPASTICITY
     Route: 037
  2. QVAR [Suspect]
     Active Substance: BECLOMETHASONE DIPROPIONATE
  3. LAMOTRIGINE. [Suspect]
     Active Substance: LAMOTRIGINE
     Route: 048
  4. LEVETIRACETAM. [Suspect]
     Active Substance: LEVETIRACETAM
  5. OMEGA-3S/DHA/EPA/FISH OIL [Suspect]
     Active Substance: DOCONEXENT\ ICOSAPENT\ FISH OIL\ OMEGA-3 FATTY ACIDS
     Route: 048
  6. EPIPEN [Suspect]
     Active Substance: EPINEPHRINE
  7. GUAR GUM PACKET [Suspect]
     Active Substance: GUAR GUM
  8. LAMOTRIGINE. [Suspect]
     Active Substance: LAMOTRIGINE
     Route: 048
  9. LIDOCAINE. [Suspect]
     Active Substance: LIDOCAINE
     Route: 061
  10. OXYCODONE HYDCHLORIDE [Suspect]
     Active Substance: OXYCODONE HYDROCHLORIDE
  11. POLYETHYLENE GLYCOL 2250 [Suspect]
     Active Substance: POLYETHYLENE GLYCOLS
     Route: 048
  12. BACLOFEN. [Suspect]
     Active Substance: BACLOFEN
     Route: 048
  13. TOPIRAMATE. [Suspect]
     Active Substance: TOPIRAMATE
  14. ALBUTEROL. [Suspect]
     Active Substance: ALBUTEROL
  15. CLONAZEPAM. [Suspect]
     Active Substance: CLONAZEPAM
     Route: 048
  16. LANSOPRAZOLE. [Suspect]
     Active Substance: LANSOPRAZOLE
     Route: 048
  17. NASONEX (MOMETASONE FUROATE MONOHYDRATE) [Suspect]
     Active Substance: MOMETASONE FUROATE MONOHYDRATE
  18. MULTIVITIMIN WITH IRON (TAB-A-VITE W/IRON) [Suspect]
     Active Substance: IRON\VITAMINS
     Route: 048
  19. SODIUM CITRATE AND CITRIC ACID [Suspect]
     Active Substance: CITRIC ACID MONOHYDRATE\SODIUM CITRATE

REACTIONS (6)
  - Muscle tightness [None]
  - Therapeutic response decreased [Unknown]
  - Hypertonia [None]
  - Medical device site fibrosis [Unknown]
  - Device breakage [None]
  - Hiccups [None]
